FAERS Safety Report 9204692 (Version 1)
Quarter: 2013Q2

REPORT INFORMATION
  Report Type: Report from Study
  Country: US (occurrence: US)
  Receive Date: 20130402
  Receipt Date: 20130402
  Transmission Date: 20140414
  Serious: Yes (Hospitalization)
  Sender: FDA-Public Use
  Company Number: US-CELGENEUS-163-21660-13033782

PATIENT
  Age: 60 Year
  Sex: Female
  Weight: 68.1 kg

DRUGS (4)
  1. ABRAXANE [Suspect]
     Indication: SQUAMOUS CELL CARCINOMA OF HEAD AND NECK
     Route: 065
     Dates: start: 20120913
  2. ABRAXANE [Suspect]
     Route: 065
     Dates: start: 20121115, end: 20130109
  3. 5-FU [Suspect]
     Indication: SQUAMOUS CELL CARCINOMA OF HEAD AND NECK
     Route: 065
     Dates: start: 20120913
  4. CISPLATIN [Suspect]
     Indication: SQUAMOUS CELL CARCINOMA OF HEAD AND NECK
     Route: 065
     Dates: start: 20120913

REACTIONS (1)
  - Pneumonia aspiration [Recovered/Resolved]
